FAERS Safety Report 25734508 (Version 1)
Quarter: 2025Q3

REPORT INFORMATION
  Report Type: Other
  Country: CA (occurrence: CA)
  Receive Date: 20250828
  Receipt Date: 20250828
  Transmission Date: 20251020
  Serious: Yes (Hospitalization)
  Sender: BIONPHARMA INC.
  Company Number: CA-Bion-015214

PATIENT
  Age: 14 Year
  Sex: Female

DRUGS (5)
  1. NAPROXEN SODIUM [Suspect]
     Active Substance: NAPROXEN SODIUM
     Indication: Arthritis
  2. NIVOLUMAB [Concomitant]
     Active Substance: NIVOLUMAB
     Indication: Epithelioid mesothelioma
  3. NELVUTAMIG [Concomitant]
     Active Substance: NELVUTAMIG
     Indication: Epithelioid mesothelioma
  4. PREDNISOLONE [Concomitant]
     Active Substance: PREDNISOLONE
     Indication: Arthritis
  5. NAPROXEN SODIUM [Suspect]
     Active Substance: NAPROXEN SODIUM
     Indication: Arthritis

REACTIONS (2)
  - Gastrointestinal disorder [Unknown]
  - Drug ineffective [Not Recovered/Not Resolved]
